FAERS Safety Report 9316354 (Version 1)
Quarter: 2013Q2

REPORT INFORMATION
  Report Type: Spontaneous
  Country: JP (occurrence: None)
  Receive Date: 20130521
  Receipt Date: 20130521
  Transmission Date: 20140414
  Serious: Yes (Hospitalization)
  Sender: FDA-Public Use
  Company Number: 2013S1001102

PATIENT
  Age: 77 Year
  Sex: Male
  Weight: 77 kg

DRUGS (19)
  1. LIVALO (PITAVASTATIN) TABLETS 2 MG [Suspect]
     Indication: DYSLIPIDAEMIA
     Route: 048
     Dates: start: 20130215, end: 20130312
  2. INVESTIGATIONAL DRUG [Suspect]
     Dates: start: 20130222, end: 20130313
  3. FAMOTIDINE (FAMOTIDINE) [Suspect]
     Indication: GASTRITIS PROPHYLAXIS
     Route: 048
     Dates: start: 20130215, end: 20130312
  4. METGLUCO [Suspect]
     Indication: DIABETES MELLITUS
     Route: 048
     Dates: end: 20130313
  5. BEZATATE [Suspect]
     Indication: DYSLIPIDAEMIA
     Route: 048
     Dates: start: 20130215, end: 20130313
  6. ZETIA (EZETIMIBE) [Suspect]
     Indication: DYSLIPIDAEMIA
     Route: 048
     Dates: end: 20130313
  7. OLMETEC (OLMESARTAN MEDOXOMIL) [Suspect]
     Indication: HYPERTENSION
     Route: 048
     Dates: end: 20130313
  8. JANUVIA (SITAGLIPTIN PHOSPHATE) [Suspect]
     Indication: DIABETES MELLITUS
     Route: 048
     Dates: start: 20130215, end: 20130313
  9. NIFELANTERN CR [Suspect]
     Indication: DIABETES MELLITUS
     Route: 048
     Dates: start: 20130215, end: 20130312
  10. TALION /01587402/ [Suspect]
     Indication: ECZEMA
     Route: 048
     Dates: end: 20130312
  11. ATARAX [Suspect]
     Indication: ECZEMA
     Route: 048
     Dates: end: 20130312
  12. HUMALOG MIX [Concomitant]
  13. XALATAN [Concomitant]
  14. HYALEIN [Concomitant]
  15. NETICONAZOLE [Concomitant]
  16. OINTMENT FOR SCROTAL [Concomitant]
  17. OINTMENT FOR ECZEMA ACUTE [Concomitant]
  18. OINTMENT FOR TINEA PEDIS [Concomitant]
  19. BIFIDOBACTERIUM [Concomitant]

REACTIONS (6)
  - Vomiting [None]
  - Gastroenteritis [None]
  - Dehydration [None]
  - Arthralgia [None]
  - Renal failure acute [None]
  - Aspartate aminotransferase increased [None]
